FAERS Safety Report 7094875-8 (Version None)
Quarter: 2010Q4

REPORT INFORMATION
  Report Type: 
  Country: None (occurrence: None)
  Receive Date: 20101111
  Receipt Date: 20101102
  Transmission Date: 20110411
  Serious: No
  Sender: FDA-Public Use
  Company Number: US-BIOGENIDEC-2010BI008151

PATIENT
  Sex: Female

DRUGS (2)
  1. TYSABRI [Suspect]
     Indication: MULTIPLE SCLEROSIS
     Route: 042
     Dates: start: 20081201
  2. AVONEX [Concomitant]
     Indication: MULTIPLE SCLEROSIS
     Route: 030
     Dates: start: 20030610

REACTIONS (7)
  - ALOPECIA [None]
  - CONFUSIONAL STATE [None]
  - CONSTIPATION [None]
  - JOINT RANGE OF MOTION DECREASED [None]
  - MADAROSIS [None]
  - PAIN [None]
  - VISION BLURRED [None]
